FAERS Safety Report 26084491 (Version 1)
Quarter: 2025Q4

REPORT INFORMATION
  Report Type: Spontaneous
  Country: US (occurrence: US)
  Receive Date: 20251124
  Receipt Date: 20251124
  Transmission Date: 20260117
  Serious: Yes (Other)
  Sender: NOVO NORDISK
  Company Number: US-NOVOPROD-1567989

PATIENT

DRUGS (1)
  1. OZEMPIC [Suspect]
     Active Substance: SEMAGLUTIDE
     Indication: Product used for unknown indication
     Dosage: UNK

REACTIONS (7)
  - Bedridden [Unknown]
  - Gait inability [Unknown]
  - Impaired work ability [Unknown]
  - Intervertebral disc space narrowing [Unknown]
  - Nerve compression [Unknown]
  - Nerve injury [Unknown]
  - Pain [Unknown]
